FAERS Safety Report 6885721-3 (Version None)
Quarter: 2010Q3

REPORT INFORMATION
  Report Type: 
  Country: None (occurrence: None)
  Receive Date: 20100729
  Receipt Date: 20081125
  Transmission Date: 20110219
  Serious: Yes (Other)
  Sender: FDA-Public Use
  Company Number: US-PFIZER INC-2008088693

PATIENT
  Sex: Male
  Weight: 102 kg

DRUGS (3)
  1. CELEBREX [Suspect]
     Indication: INJURY
     Dates: start: 20030101
  2. CELEBREX [Suspect]
     Indication: BACK INJURY
  3. PAXIL [Concomitant]

REACTIONS (7)
  - CARDIOVASCULAR DISORDER [None]
  - CHEST PAIN [None]
  - COAGULOPATHY [None]
  - HYPERTENSION [None]
  - INSOMNIA [None]
  - MALAISE [None]
  - WEIGHT DECREASED [None]
